FAERS Safety Report 5261980-8 (Version None)
Quarter: 2007Q1

REPORT INFORMATION
  Report Type: 
  Country: None (occurrence: None)
  Receive Date: 20070308
  Receipt Date: 20070227
  Transmission Date: 20070707
  Serious: Yes (Other)
  Sender: FDA-Public Use
  Company Number: 233650K06USA

PATIENT
  Age: 66 Year
  Sex: Male

DRUGS (9)
  1. REBIF [Suspect]
     Indication: MULTIPLE SCLEROSIS
     Dosage: 44 MCG, 3 IN 1 WEEKS, SUBCUTANEOUS
     Route: 058
     Dates: start: 20040827, end: 20070226
  2. TOPROL-XL [Concomitant]
  3. IMMUNOGLOBULIN (IMMUNOGLOBULIN HUMAN NORMAL) [Concomitant]
  4. BACLOFEN [Concomitant]
  5. VALIUM [Concomitant]
  6. LYRICA [Concomitant]
  7. ZENAFLEX (TIZANIDINE HYDROCHLORIDE) [Concomitant]
  8. PLAVIX [Concomitant]
  9. ASPIRIN [Concomitant]

REACTIONS (3)
  - BLADDER CANCER [None]
  - DISEASE RECURRENCE [None]
  - IDIOPATHIC THROMBOCYTOPENIC PURPURA [None]
